FAERS Safety Report 5606452-3 (Version None)
Quarter: 2008Q1

REPORT INFORMATION
  Report Type: 
  Country: None (occurrence: None)
  Receive Date: 20080125
  Receipt Date: 20080114
  Transmission Date: 20080703
  Serious: Yes (Hospitalization)
  Sender: FDA-Public Use
  Company Number: 2008-00227

PATIENT
  Age: 51 Year
  Sex: Female

DRUGS (1)
  1. NORCO [Suspect]
     Dosage: ORAL
     Route: 048

REACTIONS (2)
  - ALCOHOLISM [None]
  - OVERDOSE [None]
